FAERS Safety Report 16711806 (Version 2)
Quarter: 2020Q2

REPORT INFORMATION
  Report Type: Spontaneous
  Country: US (occurrence: US)
  Receive Date: 20190816
  Receipt Date: 20200401
  Transmission Date: 20200713
  Serious: Yes (Death, Disabling)
  Sender: FDA-Public Use
  Company Number: US-MYLANLABS-2019M1073404

PATIENT
  Age: 85 Year
  Sex: Male

DRUGS (6)
  1. VITAMIN D2 [Concomitant]
     Active Substance: ERGOCALCIFEROL
     Indication: SUPPLEMENTATION THERAPY
     Dosage: 50000 INTERNATIONAL UNIT, QD
     Dates: end: 20190727
  2. PANTOPRAZOLE [Concomitant]
     Active Substance: PANTOPRAZOLE
     Indication: GASTROOESOPHAGEAL REFLUX DISEASE
     Dosage: UNK UNK, PRN
     Dates: end: 20190727
  3. PRAVASTATIN. [Concomitant]
     Active Substance: PRAVASTATIN
     Indication: BLOOD CHOLESTEROL INCREASED
     Dosage: 40 MILLIGRAM, QD
     Dates: end: 20190727
  4. AMLODIPINE BESILATE/VALSARTAN [Suspect]
     Active Substance: AMLODIPINE BESYLATE\VALSARTAN
     Indication: HYPERTENSION
     Dosage: UNK
     Dates: start: 20160707, end: 20160809
  5. DOXAZOSIN [Concomitant]
     Active Substance: DOXAZOSIN MESYLATE
     Indication: HYPERTENSION
     Dosage: 4 MILLIGRAM, QD
     Dates: end: 20190727
  6. METOPROLOL. [Concomitant]
     Active Substance: METOPROLOL
     Indication: HYPERTENSION
     Dosage: 25 MILLIGRAM, QD
     Dates: end: 20190727

REACTIONS (2)
  - Recalled product administered [Unknown]
  - Gastric cancer [Fatal]

NARRATIVE: CASE EVENT DATE: 20190401
